FAERS Safety Report 6541239-9 (Version None)
Quarter: 2010Q1

REPORT INFORMATION
  Report Type: 
  Country: None (occurrence: None)
  Receive Date: 20100118
  Receipt Date: 20100111
  Transmission Date: 20100710
  Serious: Yes (Other)
  Sender: FDA-Public Use
  Company Number: US-ELI_LILLY_AND_COMPANY-US201001002021

PATIENT
  Sex: Female
  Weight: 124.72 kg

DRUGS (3)
  1. BYETTA [Suspect]
     Indication: TYPE 2 DIABETES MELLITUS
     Dosage: 5 UG, UNK
     Route: 058
     Dates: start: 20060101
  2. MONOPRIL [Concomitant]
     Indication: BLOOD PRESSURE
  3. ANALGESICS [Concomitant]
     Indication: ARTHRALGIA

REACTIONS (7)
  - ARTHRALGIA [None]
  - ARTHRITIS [None]
  - ARTHROPATHY [None]
  - BACK PAIN [None]
  - FALL [None]
  - INJURY [None]
  - PAIN [None]
